FAERS Safety Report 5900592-7 (Version None)
Quarter: 2008Q3

REPORT INFORMATION
  Report Type: 
  Country: None (occurrence: None)
  Receive Date: 20080926
  Receipt Date: 20080922
  Transmission Date: 20090109
  Serious: Yes (Other)
  Sender: FDA-Public Use
  Company Number: IL-BAXTER-2008BH010031

PATIENT
  Age: 60 Year
  Sex: Female

DRUGS (1)
  1. HEPARIN SODIUM 5,000 UNITS IN DEXTROSE 5% [Suspect]
     Indication: PROPHYLAXIS
     Dosage: DOSE UNIT:UNKNOWN
     Route: 042

REACTIONS (1)
  - HEPARIN-INDUCED THROMBOCYTOPENIA [None]
